FAERS Safety Report 10308070 (Version 1)
Quarter: 2014Q3

REPORT INFORMATION
  Report Type: Spontaneous
  Country: FR (occurrence: FR)
  Receive Date: 20140716
  Receipt Date: 20140716
  Transmission Date: 20150326
  Serious: Yes (Other)
  Sender: FDA-Public Use
  Company Number: FR-PFIZER INC-2014195038

PATIENT
  Age: 30 Year
  Sex: Female

DRUGS (4)
  1. NOZINAN [Suspect]
     Active Substance: LEVOMEPROMAZINE
     Dosage: UNK
     Route: 048
  2. XANAX [Suspect]
     Active Substance: ALPRAZOLAM
     Dosage: 0.5 MG, 3X/DAY
     Route: 048
  3. METHADONE AP-HP [Suspect]
     Active Substance: METHADONE HYDROCHLORIDE
     Dosage: 100 MG, 1X/DAY
     Route: 048
  4. VENTOLINE [Concomitant]
     Active Substance: ALBUTEROL
     Dosage: UNK

REACTIONS (1)
  - Urinary retention [Recovered/Resolved]

NARRATIVE: CASE EVENT DATE: 20140506
